FAERS Safety Report 13906680 (Version 1)
Quarter: 2017Q3

REPORT INFORMATION
  Report Type: Spontaneous
  Country: US (occurrence: US)
  Receive Date: 20170825
  Receipt Date: 20170825
  Transmission Date: 20171127
  Serious: Yes (Other)
  Sender: FDA-Public Use
  Company Number: US-LINDE GAS NORTH AMERICA LLC, LINDE GAS PUERTO RICO INC.-US-LHC-2017186

PATIENT
  Age: 9 Year
  Sex: Female

DRUGS (1)
  1. OXYGEN (GENERIC) [Suspect]
     Active Substance: OXYGEN

REACTIONS (1)
  - Bradypnoea [Unknown]
